FAERS Safety Report 22121063 (Version 1)
Quarter: 2023Q1

REPORT INFORMATION
  Report Type: Spontaneous
  Country: US (occurrence: US)
  Receive Date: 20230321
  Receipt Date: 20230321
  Transmission Date: 20230417
  Serious: Yes (Other)
  Sender: FDA-Public Use
  Company Number: US-PFIZER INC-2021605571

PATIENT
  Age: 76 Year
  Sex: Female
  Weight: 45.351 kg

DRUGS (2)
  1. XELJANZ XR [Suspect]
     Active Substance: TOFACITINIB CITRATE
     Indication: Rheumatoid arthritis
     Dosage: 11 MG, DAILY
  2. PREDNISONE [Concomitant]
     Active Substance: PREDNISONE
     Dosage: 2.5
     Dates: start: 2019, end: 202207

REACTIONS (1)
  - Fall [Unknown]
